APPROVED DRUG PRODUCT: CHLORPROMAZINE HYDROCHLORIDE
Active Ingredient: CHLORPROMAZINE HYDROCHLORIDE
Strength: 50MG
Dosage Form/Route: TABLET;ORAL
Application: A216788 | Product #003 | TE Code: AB
Applicant: AUROBINDO PHARMA LTD
Approved: Apr 25, 2025 | RLD: No | RS: No | Type: RX